FAERS Safety Report 9221859 (Version 1)
Quarter: 2013Q2

REPORT INFORMATION
  Report Type: Spontaneous
  Country: US (occurrence: US)
  Receive Date: 20130410
  Receipt Date: 20130410
  Transmission Date: 20140414
  Serious: No
  Sender: FDA-Public Use
  Company Number: US-009507513-1304USA003103

PATIENT
  Age: 70 Year
  Sex: Female

DRUGS (1)
  1. DORZOLAMIDE HYDROCHLORIDE/TIMOLOL MALEATE [Suspect]

REACTIONS (2)
  - Skin exfoliation [Unknown]
  - Pruritus [Unknown]
